FAERS Safety Report 8342223-5 (Version None)
Quarter: 2012Q2

REPORT INFORMATION
  Report Type: 
  Country: None (occurrence: None)
  Receive Date: 20120507
  Receipt Date: 20120426
  Transmission Date: 20120825
  Serious: Yes (Other)
  Sender: FDA-Public Use
  Company Number: US-AMGEN-USASP2012026538

PATIENT
  Age: 54 Year
  Sex: Female

DRUGS (2)
  1. TREXALL [Concomitant]
     Dosage: UNK
     Dates: start: 20040423
  2. ENBREL [Suspect]
     Indication: RHEUMATOID ARTHRITIS
     Dosage: 50 MG, QWK
     Dates: start: 20040423

REACTIONS (10)
  - REFLUX GASTRITIS [None]
  - OSTEOARTHRITIS [None]
  - SARCOIDOSIS [None]
  - BREAST PAIN [None]
  - GASTRITIS [None]
  - HEART RATE INCREASED [None]
  - CHEST PAIN [None]
  - PAPULE [None]
  - DRUG INEFFECTIVE [None]
  - CATHETERISATION CARDIAC [None]
